FAERS Safety Report 6759566-9 (Version None)
Quarter: 2010Q2

REPORT INFORMATION
  Report Type: 
  Country: None (occurrence: None)
  Receive Date: 20100607
  Receipt Date: 20100603
  Transmission Date: 20101027
  Serious: Yes (Hospitalization)
  Sender: FDA-Public Use
  Company Number: US-BRISTOL-MYERS SQUIBB COMPANY-15134224

PATIENT
  Age: 77 Year
  Sex: Male
  Weight: 89 kg

DRUGS (14)
  1. CETUXIMAB [Suspect]
     Indication: LUNG ADENOCARCINOMA STAGE IV
     Dosage: NO OF INF:4
     Route: 042
     Dates: start: 20100413, end: 20100511
  2. CISPLATIN [Suspect]
     Indication: LUNG ADENOCARCINOMA STAGE IV
     Dosage: NO OF INF:2
     Route: 042
     Dates: start: 20100413, end: 20100511
  3. GEMCITABINE HCL [Suspect]
     Indication: LUNG ADENOCARCINOMA STAGE IV
     Dosage: NO OF INF:3
     Route: 042
     Dates: start: 20100413, end: 20100511
  4. ASPIRIN [Concomitant]
     Route: 048
  5. CRESTOR [Concomitant]
     Indication: MIXED HYPERLIPIDAEMIA
     Route: 048
  6. FELODIPINE [Concomitant]
     Indication: ESSENTIAL HYPERTENSION
     Dosage: FELODIPINE SR
     Route: 048
  7. GEMFIBROZIL [Concomitant]
     Indication: MIXED HYPERLIPIDAEMIA
     Route: 048
  8. PRINZIDE [Concomitant]
     Indication: ESSENTIAL HYPERTENSION
     Dosage: 1 DF=12 TO12.5MG
     Route: 048
  9. COMPAZINE [Concomitant]
     Dosage: AS NEEDED
     Route: 065
     Dates: start: 20100413
  10. EMEND [Concomitant]
     Dosage: ON DAY 1,2,3
     Route: 048
     Dates: start: 20100413
  11. DOXYCYCLINE [Concomitant]
     Route: 065
     Dates: start: 20100427
  12. ZOMETA [Concomitant]
     Indication: METASTASES TO SPINE
     Route: 042
     Dates: start: 20100427
  13. ZOLOFT [Concomitant]
     Route: 048
  14. GRANISETRON [Concomitant]
     Route: 062
     Dates: start: 20100524

REACTIONS (2)
  - ORTHOSTATIC HYPOTENSION [None]
  - PANCREATITIS [None]
